FAERS Safety Report 14229969 (Version 1)
Quarter: 2017Q4

REPORT INFORMATION
  Report Type: Spontaneous
  Country: US (occurrence: None)
  Receive Date: 20171127
  Receipt Date: 20171127
  Transmission Date: 20180321
  Serious: No
  Sender: FDA-Public Use
  Company Number: None

PATIENT
  Age: 52 Year
  Sex: Female

DRUGS (1)
  1. CAPECITABINE 500 MG GENETECH [Suspect]
     Active Substance: CAPECITABINE
     Indication: AGRANULOCYTOSIS
     Dosage: 500 MG TAKE 4 TABLETS BY MOUTH IN THE ORAL
     Route: 048
     Dates: start: 20171108

REACTIONS (2)
  - Hand-foot-and-mouth disease [None]
  - Diarrhoea [None]

NARRATIVE: CASE EVENT DATE: 20171125
